FAERS Safety Report 7757631-0 (Version None)
Quarter: 2011Q3

REPORT INFORMATION
  Report Type: 
  Country: None (occurrence: None)
  Receive Date: 20110916
  Receipt Date: 20110902
  Transmission Date: 20111222
  Serious: Yes (Hospitalization, Other)
  Sender: FDA-Public Use
  Company Number: PHHY2011BR42673

PATIENT
  Sex: Female

DRUGS (2)
  1. EXFORGE [Suspect]
     Indication: HYPERTENSION
     Dosage: 320 MG VALS AND 10 AMLO, 1 DF DAILY
     Route: 048
  2. NPH INSULIN [Concomitant]
     Indication: DIABETES MELLITUS

REACTIONS (7)
  - VOMITING [None]
  - DIARRHOEA [None]
  - DEMENTIA ALZHEIMER'S TYPE [None]
  - MULTIPLE SCLEROSIS [None]
  - VIRAL INFECTION [None]
  - MEMORY IMPAIRMENT [None]
  - PNEUMONIA [None]
